FAERS Safety Report 11898499 (Version 1)
Quarter: 2016Q1

REPORT INFORMATION
  Report Type: Spontaneous
  Country: US (occurrence: US)
  Receive Date: 20160108
  Receipt Date: 20160108
  Transmission Date: 20160526
  Serious: Yes (Other)
  Sender: FDA-Public Use
  Company Number: US-PERRIGO-15US013475

PATIENT
  Age: 52 Year
  Sex: Female
  Weight: 81.63 kg

DRUGS (1)
  1. OXYMETAZOLINE HCL [Suspect]
     Active Substance: OXYMETAZOLINE HYDROCHLORIDE
     Indication: DYSPNOEA
     Dosage: 2 SPRAYS EACH NOSTRIL, QHS
     Route: 045
     Dates: start: 201509, end: 201511

REACTIONS (3)
  - Incorrect drug administration duration [Recovered/Resolved]
  - Anosmia [Not Recovered/Not Resolved]
  - Ageusia [Not Recovered/Not Resolved]

NARRATIVE: CASE EVENT DATE: 201509
